FAERS Safety Report 24238547 (Version 1)
Quarter: 2024Q3

REPORT INFORMATION
  Report Type: Spontaneous
  Country: US (occurrence: None)
  Receive Date: 20240820
  Receipt Date: 20240820
  Transmission Date: 20241016
  Serious: Yes (Hospitalization, Disabling)
  Sender: Public
  Company Number: None

PATIENT
  Age: 86 Year
  Sex: Female
  Weight: 63.5 kg

DRUGS (5)
  1. RECLAST [Suspect]
     Active Substance: ZOLEDRONIC ACID
     Indication: Mastectomy
  2. multivi vit woman 50+ [Concomitant]
  3. VITAMIN D3 [Concomitant]
     Active Substance: CHOLECALCIFEROL
  4. CALCIUM [Concomitant]
     Active Substance: CALCIUM
  5. BIOTINI [Concomitant]

REACTIONS (5)
  - Feeling abnormal [None]
  - Nervousness [None]
  - Nasopharyngitis [None]
  - Haemorrhage [None]
  - Spinal fracture [None]

NARRATIVE: CASE EVENT DATE: 20240718
